FAERS Safety Report 5324523-6 (Version None)
Quarter: 2007Q2

REPORT INFORMATION
  Report Type: 
  Country: None (occurrence: None)
  Receive Date: 20070508
  Receipt Date: 20070426
  Transmission Date: 20071010
  Serious: Yes (Life-Threatening, Hospitalization)
  Sender: FDA-Public Use
  Company Number: 2007US000290

PATIENT
  Age: 35 Year
  Sex: Female

DRUGS (10)
  1. AMBISOME [Suspect]
     Indication: CRYPTOCOCCOSIS
     Dosage: SEE IMAGE
     Route: 041
     Dates: start: 20060921, end: 20060928
  2. AMBISOME [Suspect]
     Indication: CRYPTOCOCCOSIS
     Dosage: SEE IMAGE
     Route: 041
     Dates: start: 20060928, end: 20061002
  3. TRUVADA [Suspect]
     Indication: HIV INFECTION
     Dosage: 1 DF, UID/QD, ORAL
     Route: 048
     Dates: start: 20060221
  4. ANCOTIL(FLUCYTOSINE) [Suspect]
     Indication: DRUG USE FOR UNKNOWN INDICATION
     Dosage: 3 G, UID/QD, ORAL
     Route: 048
     Dates: start: 20060921, end: 20061002
  5. EFAVIRENZ [Suspect]
     Indication: DRUG USE FOR UNKNOWN INDICATION
     Dosage: UNK, UNK, ORAL
     Route: 048
     Dates: start: 20060221
  6. SULFAMETHOXAZOLE + TRIMETHOPRIM [Concomitant]
  7. ZITHROMAC (AZITHROMYCIN) [Concomitant]
  8. MYCOPHENOLATE MOFETIL [Concomitant]
  9. PEPCID [Concomitant]
  10. TUMS (MAGNESIUM TRISILICATE, MAGNESIUM CARBONATE) [Concomitant]

REACTIONS (10)
  - BRAIN HERNIATION [None]
  - CONDITION AGGRAVATED [None]
  - CRYPTOCOCCOSIS [None]
  - DISEASE RECURRENCE [None]
  - DRUG INTERACTION [None]
  - DRUG LEVEL INCREASED [None]
  - GASTROINTESTINAL DISORDER [None]
  - HYPERTENSION [None]
  - IMMUNE RECONSTITUTION SYNDROME [None]
  - RETCHING [None]
